FAERS Safety Report 15414733 (Version 3)
Quarter: 2019Q3

REPORT INFORMATION
  Report Type: Report from Study
  Country: TW (occurrence: TW)
  Receive Date: 20180921
  Receipt Date: 20190906
  Transmission Date: 20191004
  Serious: Yes (Death, Life-Threatening, Hospitalization)
  Sender: FDA-Public Use
  Company Number: PHHY2018TW045114

PATIENT
  Age: 66 Year
  Sex: Male
  Weight: 28 kg

DRUGS (85)
  1. ACETYLCYSTEINE. [Concomitant]
     Active Substance: ACETYLCYSTEINE
     Dosage: 200 MG, UNK
     Route: 048
     Dates: start: 20180204, end: 20180204
  2. ACETYLCYSTEINE. [Concomitant]
     Active Substance: ACETYLCYSTEINE
     Dosage: 200 MG, UNK
     Route: 048
     Dates: start: 20180205, end: 20180213
  3. FUROSEMIDE. [Concomitant]
     Active Substance: FUROSEMIDE
     Indication: HYPERTENSION
     Dosage: 40 MG, UNK
     Route: 048
     Dates: start: 20171128, end: 20171128
  4. ISOPHANE INSULIN [Concomitant]
     Active Substance: INSULIN NOS
     Indication: DIABETES MELLITUS
     Dosage: 16 U, UNK
     Route: 058
     Dates: start: 20180307, end: 20180307
  5. LANSOPRAZOLE. [Concomitant]
     Active Substance: LANSOPRAZOLE
     Indication: PROPHYLAXIS
     Dosage: 30 MG, UNK
     Route: 048
     Dates: start: 20180206, end: 20180215
  6. MAGNESIUM OXIDE. [Concomitant]
     Active Substance: MAGNESIUM OXIDE
     Indication: PROPHYLAXIS
     Dosage: 250 MG, UNK
     Route: 048
     Dates: start: 20171115, end: 20180202
  7. MYCOMB [Concomitant]
     Indication: INFECTION PROPHYLAXIS
     Dosage: UNK
     Route: 061
     Dates: start: 20180223
  8. NPH INSULIN [Concomitant]
     Active Substance: INSULIN BEEF
     Dosage: 14 U, UNK
     Route: 058
     Dates: start: 20180119, end: 20180123
  9. INSULIN REGULAR [Concomitant]
     Active Substance: INSULIN NOS
     Dosage: 6 U, UNK
     Route: 058
     Dates: start: 20171203, end: 20171207
  10. ACTRAPID [Concomitant]
     Active Substance: INSULIN HUMAN
     Dosage: 2 U, UNK
     Route: 042
     Dates: start: 20180103, end: 20180103
  11. GLUCOSE [Concomitant]
     Active Substance: DEXTROSE
     Dosage: 40 ML, UNK
     Route: 042
     Dates: start: 20171121, end: 20171121
  12. BISACODYL. [Concomitant]
     Active Substance: BISACODYL
     Indication: PROPHYLAXIS
     Dosage: 10 MG, UNK
     Route: 051
     Dates: start: 20180111, end: 20180114
  13. BISACODYL. [Concomitant]
     Active Substance: BISACODYL
     Dosage: 5 MG, UNK
     Route: 048
     Dates: start: 20180204, end: 20180204
  14. COZAAR [Concomitant]
     Active Substance: LOSARTAN POTASSIUM
     Indication: HYPERTENSION
     Dosage: 25 MG, UNK
     Route: 048
     Dates: start: 20171208, end: 20171218
  15. INSULIN ASPART [Concomitant]
     Active Substance: INSULIN ASPART
     Dosage: 6 U, UNK
     Route: 042
     Dates: start: 20180216, end: 20180220
  16. INSULIN REGULAR [Concomitant]
     Active Substance: INSULIN NOS
     Indication: DIABETES MELLITUS
     Dosage: 4 U, UNK
     Route: 058
     Dates: start: 20171126, end: 20171130
  17. INSULIN REGULAR [Concomitant]
     Active Substance: INSULIN NOS
     Dosage: 6 U, UNK
     Route: 058
     Dates: start: 20180103, end: 20180111
  18. SODIUM BICARBONATE. [Concomitant]
     Active Substance: SODIUM BICARBONATE
     Indication: SURGERY
     Dosage: 40 ML, UNK
     Route: 042
     Dates: start: 20171123, end: 20171123
  19. NOVOMIX [Concomitant]
     Active Substance: INSULIN ASPART
     Dosage: 10 U, UNK
     Route: 058
     Dates: start: 20180124, end: 20180126
  20. NOVOMIX [Concomitant]
     Active Substance: INSULIN ASPART
     Dosage: 8 U, UNK
     Route: 058
     Dates: start: 20180126, end: 20180128
  21. TASIGNA [Suspect]
     Active Substance: NILOTINIB
     Dosage: 300 MG, UNK
     Route: 048
     Dates: start: 20160629, end: 20160824
  22. TASIGNA [Suspect]
     Active Substance: NILOTINIB
     Dosage: 150 MG, UNK
     Route: 048
     Dates: start: 20161109, end: 20170131
  23. ACETAMINOPHEN. [Concomitant]
     Active Substance: ACETAMINOPHEN
     Indication: GOUT
     Dosage: 500 MG, UNK
     Route: 048
     Dates: start: 20171117, end: 20171124
  24. GLUCOSE [Concomitant]
     Active Substance: DEXTROSE
     Dosage: 80 ML, UNK
     Route: 042
     Dates: start: 20180302, end: 20180303
  25. BENZBROMARONE [Concomitant]
     Active Substance: BENZBROMARONE
     Indication: GOUT
     Dosage: 100 MG, UNK
     Route: 048
     Dates: start: 20180130, end: 20180207
  26. DEXAMETHASONE. [Concomitant]
     Active Substance: DEXAMETHASONE
     Indication: INFECTION PROPHYLAXIS
     Dosage: UNK
     Route: 061
     Dates: start: 20180203, end: 20180204
  27. GLUCOSAMINE HYDROCHLORIDE [Concomitant]
     Active Substance: GLUCOSAMINE HYDROCHLORIDE
     Indication: DIABETES MELLITUS
  28. INSULIN ASPART [Concomitant]
     Active Substance: INSULIN ASPART
     Indication: DIABETES MELLITUS
     Dosage: 6 U, UNK
     Route: 042
     Dates: start: 20171220, end: 20171221
  29. INSULIN ASPART [Concomitant]
     Active Substance: INSULIN ASPART
     Dosage: 8 U, UNK
     Route: 042
     Dates: start: 20171221, end: 20171228
  30. INSULIN ASPART [Concomitant]
     Active Substance: INSULIN ASPART
     Dosage: 1 U, UNK
     Route: 042
     Dates: start: 20180106, end: 20180106
  31. INSULIN REGULAR HM [Concomitant]
     Active Substance: INSULIN NOS
     Indication: DIABETES MELLITUS
     Dosage: 6 U, UNK
     Route: 058
     Dates: start: 20171213, end: 20171213
  32. HUMAN MONOSULIN [Concomitant]
     Active Substance: INSULIN HUMAN
     Indication: DIABETES MELLITUS
     Dosage: 6 U, UNK
     Route: 058
     Dates: start: 20180116, end: 20180116
  33. INSULIN REGULAR [Concomitant]
     Active Substance: INSULIN NOS
     Dosage: 10 U, UNK
     Route: 058
     Dates: start: 20171129, end: 20171203
  34. SENNOSIDE [Concomitant]
     Active Substance: SENNOSIDES
     Indication: PROPHYLAXIS
     Dosage: 1 DF, UNK
     Route: 048
     Dates: start: 20180110, end: 20180118
  35. ULCERIN [Concomitant]
     Indication: PROPHYLAXIS
     Dosage: 1 DF, UNK
     Route: 048
     Dates: start: 20171113, end: 20171122
  36. TASIGNA [Suspect]
     Active Substance: NILOTINIB
     Dosage: 150 MG, UNK
     Route: 048
     Dates: start: 20160615, end: 20160628
  37. ACETYLCYSTEINE. [Concomitant]
     Active Substance: ACETYLCYSTEINE
     Indication: PROPHYLAXIS
     Dosage: 600 MG, UNK
     Route: 048
     Dates: start: 20171209, end: 20180103
  38. ACETYLCYSTEINE. [Concomitant]
     Active Substance: ACETYLCYSTEINE
     Dosage: 200 MG, UNK
     Route: 048
     Dates: end: 20180205
  39. DULCOLAX NOS [Concomitant]
     Active Substance: BISACODYL OR DOCUSATE SODIUM
     Indication: PROPHYLAXIS
     Dosage: 2 DF, UNK
     Route: 051
     Dates: start: 20171208, end: 20171208
  40. DULCOLAX NOS [Concomitant]
     Active Substance: BISACODYL OR DOCUSATE SODIUM
     Dosage: 2 DF, UNK
     Route: 051
     Dates: start: 20171219, end: 20171219
  41. KENTAMIN [Concomitant]
     Indication: GOUT
     Dosage: 1 DF, UNK
     Route: 048
     Dates: start: 20171119, end: 20171120
  42. HUMAN MONOSULIN [Concomitant]
     Active Substance: INSULIN HUMAN
     Dosage: 10 U, UNK
     Route: 058
     Dates: start: 20180126, end: 20180126
  43. INSULIN REGULAR [Concomitant]
     Active Substance: INSULIN NOS
     Dosage: 6 U, UNK
     Route: 058
     Dates: start: 20180215, end: 20180216
  44. PANTOPRAZOLE [Concomitant]
     Active Substance: PANTOPRAZOLE
     Dosage: 80 MG, UNK
     Route: 042
     Dates: start: 20180203, end: 20180203
  45. TRANEXAMIC ACID. [Concomitant]
     Active Substance: TRANEXAMIC ACID
     Indication: WOUND TREATMENT
     Dosage: 250 MG, UNK
     Route: 042
     Dates: start: 20171212, end: 20180126
  46. TRANEXAMIC ACID. [Concomitant]
     Active Substance: TRANEXAMIC ACID
     Dosage: 250 MG, UNK
     Route: 042
     Dates: start: 20180220, end: 20180227
  47. NOVOMIX [Concomitant]
     Active Substance: INSULIN ASPART
     Dosage: 16 U, UNK
     Route: 058
     Dates: start: 20180114, end: 20180115
  48. TASIGNA [Suspect]
     Active Substance: NILOTINIB
     Indication: CHRONIC MYELOID LEUKAEMIA
     Dosage: 600 MG, UNK
     Route: 048
     Dates: start: 20160330, end: 20160601
  49. TASIGNA [Suspect]
     Active Substance: NILOTINIB
     Dosage: 150 MG, UNK
     Route: 048
     Dates: start: 20170201, end: 20170523
  50. ACETYLCYSTEINE. [Concomitant]
     Active Substance: ACETYLCYSTEINE
     Dosage: 600 MG, UNK
     Route: 048
     Dates: start: 20180213, end: 20180217
  51. ACTRAPID [Concomitant]
     Active Substance: INSULIN HUMAN
     Indication: DIABETES MELLITUS
     Dosage: 14 U, UNK
     Route: 058
     Dates: start: 20171125, end: 20171129
  52. AMLODIPINE [Concomitant]
     Active Substance: AMLODIPINE BESYLATE
     Indication: HYPERTENSION
     Dosage: 200 MG, UNK
     Route: 048
     Dates: start: 20171117, end: 20171117
  53. COLCHICINE. [Concomitant]
     Active Substance: COLCHICINE
     Indication: GOUT
     Dosage: 0.5 MG, UNK
     Route: 048
     Dates: start: 20171116, end: 20180103
  54. DULCOLAX NOS [Concomitant]
     Active Substance: BISACODYL OR DOCUSATE SODIUM
     Dosage: 2 DF, UNK
     Route: 051
     Dates: start: 20171222, end: 20171222
  55. GLUCOSAMINE HYDROCHLORIDE [Concomitant]
     Active Substance: GLUCOSAMINE HYDROCHLORIDE
     Indication: DIABETES MELLITUS
  56. PANTOPRAZOLE [Concomitant]
     Active Substance: PANTOPRAZOLE
     Dosage: 80 MG, UNK
     Route: 042
     Dates: start: 20180215, end: 20180215
  57. TRANEXAMIC ACID. [Concomitant]
     Active Substance: TRANEXAMIC ACID
     Dosage: 250 MG, UNK
     Route: 048
     Dates: start: 20180213, end: 20180213
  58. NOVOMIX [Concomitant]
     Active Substance: INSULIN ASPART
     Indication: DIABETES MELLITUS
     Dosage: 10 U, UNK
     Route: 058
     Dates: start: 20180105, end: 20180105
  59. NOVOMIX [Concomitant]
     Active Substance: INSULIN ASPART
     Dosage: 18 U, UNK
     Route: 058
     Dates: start: 20180118, end: 20180119
  60. TASIGNA [Suspect]
     Active Substance: NILOTINIB
     Dosage: 300 MG, UNK
     Route: 048
     Dates: start: 20160914, end: 20161011
  61. TASIGNA [Suspect]
     Active Substance: NILOTINIB
     Dosage: 200 MG, UNK
     Route: 048
     Dates: start: 20170524, end: 20180206
  62. ACETYLCYSTEINE. [Concomitant]
     Active Substance: ACETYLCYSTEINE
     Dosage: 200 MG, UNK
     Route: 048
     Dates: start: 20180121, end: 20180204
  63. ESOMEPRAZOLE. [Concomitant]
     Active Substance: ESOMEPRAZOLE MAGNESIUM
     Indication: PROPHYLAXIS
     Dosage: 40 MG, UNK
     Route: 048
     Dates: start: 20171214, end: 20171215
  64. MOSAPRIDE [Concomitant]
     Active Substance: MOSAPRIDE
     Indication: PROPHYLAXIS
     Dosage: 5 MG, UNK
     Route: 048
     Dates: start: 20180107, end: 20180213
  65. NPH INSULIN [Concomitant]
     Active Substance: INSULIN BEEF
     Dosage: 6 U, UNK
     Route: 058
     Dates: start: 20180107, end: 20180110
  66. PHYTOMENADIONE [Concomitant]
     Active Substance: PHYTONADIONE
     Indication: WOUND TREATMENT
     Dosage: 10 MG, UNK
     Route: 042
     Dates: start: 20171224, end: 20171224
  67. SENNOSIDE [Concomitant]
     Active Substance: SENNOSIDES
     Dosage: 2 DF, UNK
     Route: 048
     Dates: start: 20180118, end: 20180205
  68. NOVOMIX [Concomitant]
     Active Substance: INSULIN ASPART
     Dosage: 22 U, UNK
     Route: 058
     Dates: start: 20180109, end: 20180111
  69. GLUCOSE [Concomitant]
     Active Substance: DEXTROSE
     Indication: DIABETES MELLITUS
     Dosage: 100 ML, UNK
     Route: 042
     Dates: start: 20171120, end: 20171120
  70. GLUCOSE [Concomitant]
     Active Substance: DEXTROSE
     Dosage: 40 ML, UNK
     Route: 042
  71. BISOPROLOL [Concomitant]
     Active Substance: BISOPROLOL
     Indication: HYPERTENSION
     Dosage: 1.25 MG, UNK
     Route: 048
     Dates: start: 20171124, end: 20171206
  72. DIMETHICONE. [Concomitant]
     Active Substance: DIMETHICONE
     Indication: PROPHYLAXIS
     Dosage: 40 MG, UNK
     Route: 048
     Dates: start: 20180103, end: 20180121
  73. INSULIN ASPART [Concomitant]
     Active Substance: INSULIN ASPART
     Dosage: 4 U, UNK
     Route: 042
     Dates: start: 20180118, end: 20180213
  74. NOLIDIN [Concomitant]
     Indication: PROPHYLAXIS
     Dosage: 1 DF, UNK
     Route: 048
     Dates: start: 20171230, end: 20180103
  75. NPH INSULIN [Concomitant]
     Active Substance: INSULIN BEEF
     Indication: DIABETES MELLITUS
     Dosage: 4 U, UNK
     Route: 058
     Dates: start: 20180103, end: 20180103
  76. SILYMARIN [Concomitant]
     Active Substance: DIETARY SUPPLEMENT\HERBALS\MILK THISTLE
     Indication: HEPATIC STEATOSIS
     Dosage: 150 MG, UNK
     Route: 048
     Dates: start: 20180124, end: 20180307
  77. VENACALO-B6 [Concomitant]
     Active Substance: CALCIUM BROMIDE\DIPHENHYDRAMINE HYDROCHLORIDE\PYRIDOXINE HYDROCHLORIDE
     Indication: ALLERGY PROPHYLAXIS
     Dosage: UNK
     Route: 042
     Dates: start: 20171214, end: 20180215
  78. TASIGNA [Suspect]
     Active Substance: NILOTINIB
     Dosage: 150 MG, UNK
     Route: 048
     Dates: start: 20161012, end: 20161108
  79. GLUCOSE [Concomitant]
     Active Substance: DEXTROSE
     Dosage: 20 ML, UNK
     Route: 042
     Dates: start: 20180126, end: 20180126
  80. GLUCOSE [Concomitant]
     Active Substance: DEXTROSE
     Dosage: 20 ML, UNK
     Route: 042
     Dates: start: 20180130, end: 20180130
  81. SMECTITE [Concomitant]
     Active Substance: MONTMORILLONITE
     Indication: RESPIRATORY DISORDER PROPHYLAXIS
     Dosage: 3 G, UNK
     Route: 048
     Dates: start: 20180209, end: 20180219
  82. FLEET ENEMA [Concomitant]
     Active Substance: SODIUM PHOSPHATE, DIBASIC\SODIUM PHOSPHATE, MONOBASIC
     Indication: PROPHYLAXIS
     Dosage: 118 ML, UNK
     Route: 051
     Dates: start: 20171212, end: 20171212
  83. GLUCOPHAGE [Concomitant]
     Active Substance: METFORMIN HYDROCHLORIDE
     Indication: GOUT
     Dosage: 500 MG, UNK
     Route: 048
     Dates: start: 20180110, end: 20180215
  84. NPH INSULIN [Concomitant]
     Active Substance: INSULIN BEEF
     Dosage: 4 U, UNK
     Route: 058
     Dates: start: 20180112, end: 20180112
  85. PANTOPRAZOLE [Concomitant]
     Active Substance: PANTOPRAZOLE
     Indication: PROPHYLAXIS
     Dosage: 40 MG, UNK
     Route: 042
     Dates: start: 20171124, end: 20171124

REACTIONS (15)
  - Sepsis [Fatal]
  - Respiratory failure [Fatal]
  - Gangrene [Unknown]
  - Colitis [Fatal]
  - Tachycardia [Fatal]
  - Haematuria [Fatal]
  - Acute kidney injury [Fatal]
  - Blister [Unknown]
  - Dyspnoea [Fatal]
  - Septic shock [Fatal]
  - Pneumonia aspiration [Fatal]
  - Atrial fibrillation [Fatal]
  - Pulmonary tuberculosis [Unknown]
  - Limb injury [Unknown]
  - Pneumonia [Fatal]

NARRATIVE: CASE EVENT DATE: 20171106
